FAERS Safety Report 14565719 (Version 1)
Quarter: 2018Q1

REPORT INFORMATION
  Report Type: Spontaneous
  Country: US (occurrence: US)
  Receive Date: 20180223
  Receipt Date: 20180223
  Transmission Date: 20180509
  Serious: No
  Sender: FDA-Public Use
  Company Number: US-009507513-1802USA011560

PATIENT
  Sex: Female

DRUGS (4)
  1. AMITIZA [Concomitant]
     Active Substance: LUBIPROSTONE
  2. ZEPATIER [Suspect]
     Active Substance: ELBASVIR\GRAZOPREVIR
     Indication: CHRONIC HEPATITIS C
     Dosage: UNK, QD
     Route: 048
     Dates: start: 201801
  3. PROTONIX [Concomitant]
     Active Substance: PANTOPRAZOLE SODIUM
  4. RESTORIL [Concomitant]
     Active Substance: TEMAZEPAM

REACTIONS (3)
  - Headache [Unknown]
  - Fatigue [Unknown]
  - Nausea [Unknown]

NARRATIVE: CASE EVENT DATE: 2018
